FAERS Safety Report 20997672 (Version 4)
Quarter: 2022Q3

REPORT INFORMATION
  Report Type: Report from Study
  Country: CA (occurrence: CA)
  Receive Date: 20220623
  Receipt Date: 20220727
  Transmission Date: 20221027
  Serious: Yes (Hospitalization, Other)
  Sender: FDA-Public Use
  Company Number: CA-TAKEDA-2022TUS041402

PATIENT
  Age: 35 Year
  Sex: Male

DRUGS (3)
  1. VEDOLIZUMAB [Suspect]
     Active Substance: VEDOLIZUMAB
     Indication: Colitis ulcerative
     Dosage: 300 MILLIGRAM
     Route: 042
     Dates: start: 20220616, end: 20220616
  2. Salofalk [Concomitant]
     Dosage: UNK
     Dates: start: 202112
  3. PREDNISONE [Concomitant]
     Active Substance: PREDNISONE
     Dosage: UNK
     Dates: start: 20220309

REACTIONS (7)
  - Colitis ulcerative [Unknown]
  - Aphthous ulcer [Unknown]
  - Weight decreased [Unknown]
  - Colitis [Unknown]
  - Chills [Unknown]
  - Pyrexia [Unknown]
  - Product dose omission issue [Unknown]
